FAERS Safety Report 7513425-2 (Version None)
Quarter: 2011Q2

REPORT INFORMATION
  Report Type: 
  Country: None (occurrence: None)
  Receive Date: 20110531
  Receipt Date: 20110127
  Transmission Date: 20111010
  Serious: Yes (Hospitalization)
  Sender: FDA-Public Use
  Company Number: US-BAYER-201038424NA

PATIENT
  Age: 42 Year
  Sex: Female
  Weight: 55.782 kg

DRUGS (6)
  1. NSAID'S [Concomitant]
  2. YAZ [Suspect]
     Dosage: UNK UNK, UNK
     Route: 048
     Dates: start: 20070301, end: 20091029
  3. CARAFATE [Concomitant]
  4. ASCORBIC ACID [Concomitant]
  5. ACETAMINOPHEN [Concomitant]
  6. MULTI-VITAMIN [Concomitant]

REACTIONS (5)
  - CHOLECYSTITIS ACUTE [None]
  - PAIN [None]
  - EMOTIONAL DISTRESS [None]
  - CHOLELITHIASIS [None]
  - GALLBLADDER INJURY [None]
